FAERS Safety Report 20670961 (Version 1)
Quarter: 2022Q2

REPORT INFORMATION
  Report Type: Spontaneous
  Country: VN (occurrence: VN)
  Receive Date: 20220404
  Receipt Date: 20220404
  Transmission Date: 20220721
  Serious: Yes (Death)
  Sender: FDA-Public Use
  Company Number: VN-ELI_LILLY_AND_COMPANY-VN202204001537

PATIENT
  Age: 85 Year
  Sex: Male

DRUGS (3)
  1. ALIMTA [Suspect]
     Active Substance: PEMETREXED DISODIUM
     Indication: Product used for unknown indication
     Dosage: 500 MG/M2, OTHER, BSA/CYCLE 21 DAY
     Route: 042
     Dates: start: 202002, end: 202109
  2. CARBOPLATIN [Concomitant]
     Active Substance: CARBOPLATIN
     Indication: Product used for unknown indication
     Dosage: UNK UNK, UNKNOWN
     Route: 065
     Dates: start: 202002, end: 202109
  3. FOLIC ACID [Concomitant]
     Active Substance: FOLIC ACID
     Indication: Product used for unknown indication
     Dosage: UNK, UNKNOWN
     Route: 065

REACTIONS (2)
  - Pleural effusion [Fatal]
  - Pneumonia [Fatal]
